FAERS Safety Report 18892700 (Version 2)
Quarter: 2021Q2

REPORT INFORMATION
  Report Type: Spontaneous
  Country: US (occurrence: US)
  Receive Date: 20210215
  Receipt Date: 20210412
  Transmission Date: 20210717
  Serious: Yes (Hospitalization, Other)
  Sender: FDA-Public Use
  Company Number: US-GLAXOSMITHKLINE-US2021036387

PATIENT
  Age: 65 Year
  Sex: Female

DRUGS (1)
  1. ADVAIR DISKUS [Suspect]
     Active Substance: FLUTICASONE PROPIONATE\SALMETEROL XINAFOATE
     Indication: ASTHMA
     Dosage: 1 PUFF(S), BID, 250/50MCG
     Route: 055

REACTIONS (8)
  - Palpitations [Recovered/Resolved]
  - Diverticulum [Unknown]
  - Cerebrovascular accident [Recovered/Resolved with Sequelae]
  - Choking sensation [Not Recovered/Not Resolved]
  - Product complaint [Unknown]
  - Abscess drainage [Recovered/Resolved]
  - Cough [Not Recovered/Not Resolved]
  - Dyspnoea [Recovered/Resolved]

NARRATIVE: CASE EVENT DATE: 202011
